FAERS Safety Report 25256587 (Version 1)
Quarter: 2025Q2

REPORT INFORMATION
  Report Type: Report from Study
  Country: US (occurrence: US)
  Receive Date: 20250430
  Receipt Date: 20250430
  Transmission Date: 20250716
  Serious: Yes (Hospitalization, Other)
  Sender: ALEXION PHARMACEUTICALS
  Company Number: US-ALXN-202401USA000639US

PATIENT

DRUGS (1)
  1. ULTOMIRIS [Suspect]
     Active Substance: RAVULIZUMAB-CWVZ
     Indication: Myasthenia gravis
     Route: 065

REACTIONS (10)
  - Hip fracture [Unknown]
  - Gallbladder enlargement [Unknown]
  - Fall [Unknown]
  - Gallbladder disorder [Unknown]
  - Balance disorder [Unknown]
  - Blepharospasm [Unknown]
  - Therapeutic response shortened [Unknown]
  - Dysphonia [Unknown]
  - Back pain [Not Recovered/Not Resolved]
  - Fatigue [Unknown]
